FAERS Safety Report 19299712 (Version 1)
Quarter: 2021Q2

REPORT INFORMATION
  Report Type: Spontaneous
  Country: US (occurrence: US)
  Receive Date: 20210524
  Receipt Date: 20210524
  Transmission Date: 20210717
  Serious: Yes (Hospitalization)
  Sender: FDA-Public Use
  Company Number: None

PATIENT
  Age: 44 Year
  Sex: Female
  Weight: 79 kg

DRUGS (8)
  1. METHYLPREDNISOLONE (SOLU?MEDROL [Concomitant]
     Dates: start: 20210310, end: 20210324
  2. ANAKINRA (KINERET) SUBCUTANEOUS INJECTION 100 [Concomitant]
     Dates: start: 20210316, end: 20210319
  3. ACYCLOVIR (ZOVIRAX) 400 MG TABLET [Concomitant]
     Dates: start: 20210308, end: 20210524
  4. PIPERACILLIN?TAZOBACTAM (ZOSYN) 3.375 GRAM/50 ML DEXTROSE IVPB [Concomitant]
     Dates: start: 20210310, end: 20210326
  5. TOCILIZUMAB (ACTEMRA) 673.6 MG IN NS 100 ML [Concomitant]
     Dates: start: 20210310, end: 20210312
  6. KEPPRA [Concomitant]
     Active Substance: LEVETIRACETAM
     Dates: start: 20210309, end: 20210524
  7. FOSPHENYTOIN (CEREBYX) 1,720 MG [Concomitant]
     Dates: start: 20210316, end: 20210326
  8. YESCARTA [Suspect]
     Active Substance: AXICABTAGENE CILOLEUCEL
     Indication: DIFFUSE LARGE B-CELL LYMPHOMA
     Dosage: ?          OTHER FREQUENCY:ONCE;?
     Route: 042
     Dates: start: 20210309, end: 20210309

REACTIONS (3)
  - Cytokine release syndrome [None]
  - Seizure [None]
  - Neurotoxicity [None]

NARRATIVE: CASE EVENT DATE: 20210309
